FAERS Safety Report 9818328 (Version 2)
Quarter: 2014Q1

REPORT INFORMATION
  Report Type: Spontaneous
  Country: US (occurrence: US)
  Receive Date: 20140115
  Receipt Date: 20140221
  Transmission Date: 20141002
  Serious: No
  Sender: FDA-Public Use
  Company Number: US-PFIZER INC-2014009239

PATIENT
  Age: 38 Year
  Sex: Female
  Weight: 49.89 kg

DRUGS (10)
  1. GABAPENTIN [Suspect]
     Indication: NEURALGIA
     Dosage: 100 MG, (AT BEDTIME)
     Route: 048
     Dates: start: 20131220, end: 20131220
  2. TRAZODONE [Concomitant]
     Indication: SOMNOLENCE
     Dosage: 150 MG, 1X/DAY (BED TIME)
  3. DEXILANT [Concomitant]
     Indication: GASTROOESOPHAGEAL REFLUX DISEASE
     Dosage: UNK, DAILY (1-2 A DAY)
  4. ZYRTEC [Concomitant]
     Indication: HYPERSENSITIVITY
     Dosage: UNK
  5. PERCOCET [Concomitant]
     Dosage: UNK
  6. XANAX [Concomitant]
     Indication: ANXIETY
     Dosage: 1 MG, UNK
  7. NAPROXEN [Concomitant]
     Indication: NECK PAIN
     Dosage: 250 MG, 2X/DAY
     Dates: start: 20131220, end: 20140108
  8. NAPROXEN [Concomitant]
     Indication: PAIN IN EXTREMITY
     Dosage: 500 MG, 2X/DAY
     Dates: start: 20140108
  9. OXYCODONE HYDROCHLORIDE W/PARACETAMOL [Concomitant]
     Indication: NECK PAIN
     Dosage: UNK MG, AS NEEDED, (7.5/325 MG 2 TABLETS EVERY 4 - 6 HOURS)
  10. OXYCODONE HYDROCHLORIDE W/PARACETAMOL [Concomitant]
     Indication: PAIN IN EXTREMITY

REACTIONS (5)
  - Throat irritation [Recovered/Resolved]
  - Dysphagia [Recovered/Resolved]
  - Xanthopsia [Recovered/Resolved]
  - Headache [Recovered/Resolved]
  - Dysgeusia [Recovered/Resolved]
